FAERS Safety Report 21497090 (Version 1)
Quarter: 2022Q4

REPORT INFORMATION
  Report Type: Spontaneous
  Country: FR (occurrence: FR)
  Receive Date: 20221023
  Receipt Date: 20221023
  Transmission Date: 20230113
  Serious: Yes (Other)
  Sender: FDA-Public Use
  Company Number: FR-drreddys-LIT/FRA/22/0156066

PATIENT
  Age: 79 Year
  Sex: Male

DRUGS (9)
  1. BORTEZOMIB [Suspect]
     Active Substance: BORTEZOMIB
     Indication: Monoclonal gammopathy
  2. BORTEZOMIB [Suspect]
     Active Substance: BORTEZOMIB
     Indication: Henoch-Schonlein purpura
  3. BORTEZOMIB [Suspect]
     Active Substance: BORTEZOMIB
     Indication: Condition aggravated
  4. MELPHALAN [Suspect]
     Active Substance: MELPHALAN
     Indication: Monoclonal gammopathy
  5. MELPHALAN [Suspect]
     Active Substance: MELPHALAN
     Indication: Henoch-Schonlein purpura
  6. MELPHALAN [Suspect]
     Active Substance: MELPHALAN
     Indication: Condition aggravated
  7. PREDNISONE [Suspect]
     Active Substance: PREDNISONE
     Indication: Monoclonal gammopathy
  8. PREDNISONE [Suspect]
     Active Substance: PREDNISONE
     Indication: Henoch-Schonlein purpura
  9. PREDNISONE [Suspect]
     Active Substance: PREDNISONE
     Indication: Condition aggravated

REACTIONS (2)
  - Drug ineffective for unapproved indication [Unknown]
  - Therapy partial responder [Unknown]
